FAERS Safety Report 14984036 (Version 1)
Quarter: 2018Q2

REPORT INFORMATION
  Report Type: Spontaneous
  Country: US (occurrence: US)
  Receive Date: 20180607
  Receipt Date: 20180607
  Transmission Date: 20180711
  Serious: Yes (Other)
  Sender: FDA-Public Use
  Company Number: US-NOVOPROD-589004

PATIENT
  Age: 52 Year
  Sex: Male

DRUGS (1)
  1. XULTOPHY 100/3.6 [Suspect]
     Active Substance: INSULIN DEGLUDEC\LIRAGLUTIDE
     Indication: PRODUCT USED FOR UNKNOWN INDICATION
     Dosage: 18 U, UNK
     Route: 058
     Dates: start: 20170608, end: 20180118

REACTIONS (1)
  - Pancreatitis [Recovered/Resolved]
